FAERS Safety Report 4886066-3 (Version None)
Quarter: 2006Q1

REPORT INFORMATION
  Report Type: 
  Country: None (occurrence: None)
  Receive Date: 20060117
  Receipt Date: 20060110
  Transmission Date: 20060701
  Serious: Yes (Other)
  Sender: FDA-Public Use
  Company Number: 200610043BVD

PATIENT
  Sex: 0

DRUGS (1)
  1. CIPROFLOXACIN [Suspect]

REACTIONS (2)
  - FACIAL PALSY [None]
  - SENSORY DISTURBANCE [None]
